FAERS Safety Report 16731776 (Version 1)
Quarter: 2019Q3

REPORT INFORMATION
  Report Type: Spontaneous
  Country: US (occurrence: US)
  Receive Date: 20190822
  Receipt Date: 20190822
  Transmission Date: 20191005
  Serious: Yes (Hospitalization, Other)
  Sender: FDA-Public Use
  Company Number: US-JNJFOC-20190818187

PATIENT
  Sex: Female

DRUGS (2)
  1. XARELTO [Suspect]
     Active Substance: RIVAROXABAN
     Route: 048
  2. XARELTO [Suspect]
     Active Substance: RIVAROXABAN
     Indication: PERIPHERAL ARTERY BYPASS
     Route: 048

REACTIONS (5)
  - Gastrointestinal haemorrhage [Unknown]
  - Vascular graft occlusion [Unknown]
  - Product use in unapproved indication [Unknown]
  - Off label use [Unknown]
  - Atrial fibrillation [Unknown]
